FAERS Safety Report 4760237-9 (Version None)
Quarter: 2005Q3

REPORT INFORMATION
  Report Type: 
  Country: None (occurrence: None)
  Receive Date: 20050831
  Receipt Date: 20050811
  Transmission Date: 20060218
  Serious: Yes (Hospitalization)
  Sender: FDA-Public Use
  Company Number: USA0508105234

PATIENT
  Age: 29 Year
  Sex: Female
  Weight: 104 kg

DRUGS (3)
  1. HUMALOG [Suspect]
     Indication: GESTATIONAL DIABETES
     Dosage: 38 U DAY
     Dates: start: 20010201
  2. HUMULIN N [Suspect]
     Indication: GESTATIONAL DIABETES
     Dosage: 14 U/1 AT BEDTIME
     Dates: start: 20010101
  3. ASPIRIN [Concomitant]

REACTIONS (8)
  - BED REST [None]
  - BLOOD GLUCOSE INCREASED [None]
  - DRUG EXPOSURE DURING PREGNANCY [None]
  - PHARMACEUTICAL PRODUCT COMPLAINT [None]
  - PREMATURE LABOUR [None]
  - TWIN PREGNANCY [None]
  - VOMITING IN PREGNANCY [None]
  - WEIGHT DECREASED [None]
